FAERS Safety Report 11471720 (Version 2)
Quarter: 2016Q1

REPORT INFORMATION
  Report Type: Report from Study
  Country: BR (occurrence: BR)
  Receive Date: 20150908
  Receipt Date: 20160111
  Transmission Date: 20160525
  Serious: Yes (Other)
  Sender: FDA-Public Use
  Company Number: PHHY2015BR106203

PATIENT
  Sex: Female
  Weight: 57 kg

DRUGS (5)
  1. LANTUS [Concomitant]
     Active Substance: INSULIN GLARGINE
     Indication: DIABETES MELLITUS
     Dosage: 18 IU, QD
     Route: 058
     Dates: start: 2005
  2. ZELMAC [Suspect]
     Active Substance: TEGASEROD
     Dosage: 3 DF (TEGASEROD 6 MG), QD (STARTED FROM ONE WEEK AGO)
     Route: 048
  3. ZELMAC [Suspect]
     Active Substance: TEGASEROD
     Indication: IRRITABLE BOWEL SYNDROME
     Dosage: 3 DF (TEGASEROD 6 MG), QD (STOPPED 2 YEARS AGO)
     Route: 065
     Dates: start: 2005
  4. INSULIN [Concomitant]
     Active Substance: INSULIN NOS
     Indication: DIABETES MELLITUS
     Dosage: 1 U, FOR EVERY 50 MG/DL OF BLOOD GLUCOSE
     Route: 058
     Dates: start: 2005
  5. ZELMAC [Suspect]
     Active Substance: TEGASEROD
     Dosage: 6 MG, UNK
     Route: 048

REACTIONS (3)
  - Visual impairment [Unknown]
  - Constipation [Recovering/Resolving]
  - Abdominal distension [Recovering/Resolving]
